FAERS Safety Report 5324800-9 (Version None)
Quarter: 2007Q2

REPORT INFORMATION
  Report Type: 
  Country: None (occurrence: None)
  Receive Date: 20070515
  Receipt Date: 20070508
  Transmission Date: 20071010
  Serious: Yes (Other)
  Sender: FDA-Public Use
  Company Number: PHNU2007DE01595

PATIENT
  Age: 70 Year
  Sex: Female
  Weight: 62 kg

DRUGS (1)
  1. POTASSIUM CHLORIDE [Suspect]
     Route: 048
     Dates: start: 20070401, end: 20070401

REACTIONS (1)
  - TACHYCARDIA [None]
